FAERS Safety Report 4394836-3 (Version None)
Quarter: 2004Q3

REPORT INFORMATION
  Report Type: 
  Country: None (occurrence: None)
  Receive Date: 20040706
  Receipt Date: 20040622
  Transmission Date: 20050211
  Serious: Yes (Other)
  Sender: FDA-Public Use
  Company Number: 2004-02799

PATIENT
  Age: 7 Year
  Sex: Female

DRUGS (1)
  1. METHYLPREDNISOLONE ACETATE [Suspect]
     Indication: DEMYELINATING POLYNEUROPATHY
     Dosage: 20MG/KG/D 3D, ONCE QMONTHX 3MO, INTRAVENOUS
     Route: 042

REACTIONS (2)
  - GENERAL PHYSICAL HEALTH DETERIORATION [None]
  - MUSCULAR WEAKNESS [None]
